FAERS Safety Report 12745292 (Version 1)
Quarter: 2016Q3

REPORT INFORMATION
  Report Type: Spontaneous
  Country: US (occurrence: US)
  Receive Date: 20160914
  Receipt Date: 20160914
  Transmission Date: 20161109
  Serious: Yes (Other)
  Sender: FDA-Public Use
  Company Number: None

PATIENT
  Age: 2 Year
  Sex: Male
  Weight: 12.51 kg

DRUGS (2)
  1. CEFDINIR. [Suspect]
     Active Substance: CEFDINIR
     Indication: EAR INFECTION
     Dosage: OTHER STRENGTH:;OTHER DOSE:ML;OTHER FREQUENCY:;OTHER ROUTE:
     Route: 048
     Dates: start: 20160823, end: 20160830
  2. PROBIOTIC [Concomitant]
     Active Substance: PROBIOTICS NOS

REACTIONS (3)
  - Diarrhoea [None]
  - Mood swings [None]
  - Mental impairment [None]

NARRATIVE: CASE EVENT DATE: 20160823
